FAERS Safety Report 6029411-8 (Version None)
Quarter: 2009Q1

REPORT INFORMATION
  Report Type: 
  Country: None (occurrence: None)
  Receive Date: 20090105
  Receipt Date: 20081219
  Transmission Date: 20090719
  Serious: Yes (Hospitalization, Other)
  Sender: FDA-Public Use
  Company Number: 20080303

PATIENT
  Age: 48 Year
  Sex: Female

DRUGS (3)
  1. VENOFER [Suspect]
     Indication: ANAEMIA
     Dosage: 300 MG-2X-03/08 AND 07/08 INTRAVENOUS
     Route: 042
     Dates: start: 20080323, end: 20080706
  2. PREMEDICATION WITH UNSPECIFIED ANTIHISTAMINE [Concomitant]
  3. MOPRAL (OMEPRAZOL) [Concomitant]

REACTIONS (7)
  - ARTHRALGIA [None]
  - BURNING SENSATION [None]
  - FACE OEDEMA [None]
  - INFUSION RELATED REACTION [None]
  - JOINT STIFFNESS [None]
  - OEDEMA PERIPHERAL [None]
  - RASH PAPULAR [None]
